FAERS Safety Report 20662902 (Version 1)
Quarter: 2022Q2

REPORT INFORMATION
  Report Type: Spontaneous
  Country: CN (occurrence: CN)
  Receive Date: 20220401
  Receipt Date: 20220401
  Transmission Date: 20220720
  Serious: Yes (Hospitalization)
  Sender: FDA-Public Use
  Company Number: CN-ELI_LILLY_AND_COMPANY-CN202203009586

PATIENT
  Age: 74 Year
  Sex: Male
  Weight: 70 kg

DRUGS (5)
  1. INSULIN HUMAN [Suspect]
     Active Substance: INSULIN HUMAN
     Indication: Type 2 diabetes mellitus
     Dosage: 40 U, DAILY (SPECTIFIC SINGLE DOSE NOT PROVIDED IN TID)
     Route: 058
     Dates: start: 2004
  2. INSULIN HUMAN [Suspect]
     Active Substance: INSULIN HUMAN
     Dosage: 45 U, DAILY (SPECTIFIC SINGLE DOSE NOT PROVIDED IN TID)
     Route: 058
  3. INSULIN HUMAN [Suspect]
     Active Substance: INSULIN HUMAN
     Dosage: 22 U, BID
     Route: 058
  4. HUMALOG MIX50/50 [Suspect]
     Active Substance: INSULIN LISPRO
     Indication: Type 2 diabetes mellitus
     Dosage: UNK UNK, TID
     Route: 058
  5. METFORMIN [Concomitant]
     Active Substance: METFORMIN HYDROCHLORIDE
     Indication: Type 2 diabetes mellitus
     Dosage: UNK, DAILY
     Route: 048

REACTIONS (4)
  - Diabetes mellitus [Unknown]
  - Blood glucose increased [Unknown]
  - Illness [Unknown]
  - Drug ineffective [Unknown]
